FAERS Safety Report 15131389 (Version 7)
Quarter: 2018Q3

REPORT INFORMATION
  Report Type: Report from Study
  Country: US (occurrence: US)
  Receive Date: 20180711
  Receipt Date: 20180918
  Transmission Date: 20181010
  Serious: Yes (Hospitalization)
  Sender: FDA-Public Use
  Company Number: US-ACTELION-A-US2018-175174

PATIENT
  Age: 69 Year
  Sex: Male
  Weight: 68.27 kg

DRUGS (6)
  1. VELETRI [Suspect]
     Active Substance: EPOPROSTENOL
     Dosage: 16 NG/KG, PER MIN
     Route: 042
  2. ADEMPAS [Suspect]
     Active Substance: RIOCIGUAT
     Dosage: 0.5 MG, TID
     Route: 065
  3. TYVASO [Concomitant]
     Active Substance: TREPROSTINIL
  4. VELETRI [Suspect]
     Active Substance: EPOPROSTENOL
     Indication: PULMONARY ARTERIAL HYPERTENSION
     Dosage: 11 NG/KG, PER MIN
     Route: 042
  5. OPSUMIT [Suspect]
     Active Substance: MACITENTAN
     Indication: PULMONARY ARTERIAL HYPERTENSION
     Dosage: 10 MG, QD
     Route: 048
     Dates: start: 20180324
  6. ADEMPAS [Suspect]
     Active Substance: RIOCIGUAT
     Indication: PRODUCT USED FOR UNKNOWN INDICATION
     Dosage: 1 MG, TID
     Route: 065
     Dates: start: 20180731

REACTIONS (21)
  - Arthralgia [Unknown]
  - Asthenia [Unknown]
  - Oxygen consumption increased [Not Recovered/Not Resolved]
  - Pain in jaw [Not Recovered/Not Resolved]
  - Pain in extremity [Not Recovered/Not Resolved]
  - Weight decreased [Unknown]
  - Headache [Unknown]
  - Nausea [Unknown]
  - Diarrhoea [Unknown]
  - Myalgia [Unknown]
  - Fatigue [Not Recovered/Not Resolved]
  - Sinus congestion [Unknown]
  - Decreased appetite [Unknown]
  - Neck pain [Not Recovered/Not Resolved]
  - Dyspnoea [Recovering/Resolving]
  - Paranasal sinus hyposecretion [Unknown]
  - Condition aggravated [Unknown]
  - Therapy change [Unknown]
  - Flushing [Unknown]
  - Heart rate increased [Unknown]
  - Malaise [Unknown]

NARRATIVE: CASE EVENT DATE: 20180629
